FAERS Safety Report 17400761 (Version 1)
Quarter: 2020Q1

REPORT INFORMATION
  Report Type: Spontaneous
  Country: TR (occurrence: TR)
  Receive Date: 20200211
  Receipt Date: 20200211
  Transmission Date: 20200409
  Serious: Yes (Life-Threatening, Hospitalization)
  Sender: FDA-Public Use
  Company Number: TR-STRIDES ARCOLAB LIMITED-2020SP001134

PATIENT
  Age: 58 Year
  Sex: Female

DRUGS (4)
  1. METHYLPREDNISOLONE. [Concomitant]
     Active Substance: METHYLPREDNISOLONE
     Indication: NEUROMUSCULAR BLOCKADE
     Dosage: 1 MILLILITER
     Route: 065
  2. SALINE                             /00075401/ [Concomitant]
     Active Substance: SODIUM CHLORIDE
     Indication: NEUROMUSCULAR BLOCKADE
     Dosage: UNK
     Route: 065
  3. BUPIVACAINE. [Suspect]
     Active Substance: BUPIVACAINE
     Indication: NEUROMUSCULAR BLOCKADE
     Dosage: 20 MILLILITER
     Route: 065
  4. LIDOCAINE. [Suspect]
     Active Substance: LIDOCAINE
     Indication: NEUROMUSCULAR BLOCKADE
     Dosage: 10 MILLILITER
     Route: 065

REACTIONS (6)
  - Local anaesthetic systemic toxicity [Unknown]
  - Motor dysfunction [Unknown]
  - Seizure [Recovered/Resolved]
  - Aphasia [Unknown]
  - Apathy [Unknown]
  - Loss of consciousness [Recovered/Resolved]
